FAERS Safety Report 9642151 (Version 2)
Quarter: 2013Q4

REPORT INFORMATION
  Report Type: Spontaneous
  Country: FR (occurrence: FR)
  Receive Date: 20131023
  Receipt Date: 20131023
  Transmission Date: 20140711
  Serious: Yes (Other)
  Sender: FDA-Public Use
  Company Number: PHHY2013FR101630

PATIENT
  Age: 65 Year
  Sex: Male
  Weight: 106 kg

DRUGS (4)
  1. OSLIF BREEZHALER [Suspect]
     Indication: CHRONIC OBSTRUCTIVE PULMONARY DISEASE
     Dosage: 1 DF, QD
     Dates: start: 20130802
  2. KARDEGIC [Concomitant]
     Dosage: UNK
     Dates: start: 2008
  3. FRACTAL [Concomitant]
     Dosage: UNK
     Dates: start: 2008
  4. COVERSYL [Concomitant]
     Dosage: UNK
     Dates: start: 2008

REACTIONS (4)
  - Blood creatinine increased [Unknown]
  - Face oedema [Recovered/Resolved]
  - Oedema peripheral [Recovered/Resolved]
  - Chest discomfort [Recovered/Resolved]
